FAERS Safety Report 8997348 (Version 4)
Quarter: 2013Q1

REPORT INFORMATION
  Report Type: Report from Study
  Country: US (occurrence: US)
  Receive Date: 20130104
  Receipt Date: 20130308
  Transmission Date: 20140127
  Serious: Yes (Disabling, Other)
  Sender: FDA-Public Use
  Company Number: US-JNJFOC-20121214305

PATIENT
  Age: 50 None
  Sex: Female
  Weight: 81.1 kg

DRUGS (8)
  1. REMICADE [Suspect]
     Indication: CROHN^S DISEASE
     Dosage: 1 WEEK, 2 WEEKS, 4 WEEKS, 8 WEEKS
     Route: 042
     Dates: start: 20120801
  2. REMICADE [Suspect]
     Indication: CROHN^S DISEASE
     Dosage: 1 WEEK, 2 WEEKS, 4 WEEKS, 8 WEEKS
     Route: 042
     Dates: start: 20121107, end: 20121107
  3. REMICADE [Suspect]
     Indication: CROHN^S DISEASE
     Dosage: 1 WEEK, 2 WEEKS, 4 WEEKS, 8 WEEKS
     Route: 042
     Dates: start: 2012
  4. REMICADE [Suspect]
     Indication: CROHN^S DISEASE
     Dosage: 1 WEEK, 2 WEEKS, 4 WEEKS, 8 WEEKS
     Route: 042
     Dates: start: 2012
  5. PURINETHOL [Concomitant]
     Indication: CROHN^S DISEASE
     Dosage: 20 YEARS
     Route: 065
  6. VITAMIN B COMPLEX [Concomitant]
     Route: 065
  7. IRON [Concomitant]
     Route: 065
  8. B 12 [Concomitant]
     Route: 065

REACTIONS (7)
  - Arthritis [Recovering/Resolving]
  - Adverse drug reaction [Recovering/Resolving]
  - Infusion related reaction [Recovering/Resolving]
  - Serum sickness [Recovered/Resolved]
  - Drug ineffective [Unknown]
  - Musculoskeletal stiffness [Recovering/Resolving]
  - Infusion site reaction [Recovered/Resolved]
